FAERS Safety Report 11665672 (Version 1)
Quarter: 2015Q4

REPORT INFORMATION
  Report Type: Report from Study
  Country: US (occurrence: US)
  Receive Date: 20151027
  Receipt Date: 20151027
  Transmission Date: 20160304
  Serious: Yes (Hospitalization, Other)
  Sender: FDA-Public Use
  Company Number: US-AMGEN-USASP2015110567

PATIENT
  Age: 82 Year
  Sex: Female

DRUGS (9)
  1. PAROXETINE [Concomitant]
     Active Substance: PAROXETINE\PAROXETINE HYDROCHLORIDE
     Dosage: 25 MG, QD
  2. ARANESP [Suspect]
     Active Substance: DARBEPOETIN ALFA
     Indication: MYELODYSPLASTIC SYNDROME
     Dosage: QWK
     Route: 065
     Dates: start: 2015
  3. DIGOXIN. [Concomitant]
     Active Substance: DIGOXIN
     Dosage: 125 MUG, QD
  4. DILTIAZEM [Concomitant]
     Active Substance: DILTIAZEM
     Dosage: 180 MG, QD
  5. LAMICTAL [Concomitant]
     Active Substance: LAMOTRIGINE
     Dosage: 75 MG, QD
  6. NASONEX [Concomitant]
     Active Substance: MOMETASONE FUROATE
     Dosage: 2 SPRAYS EACH NOSTRIL, QD
  7. CLONAZEPAM. [Concomitant]
     Active Substance: CLONAZEPAM
     Dosage: 0.5 MG, BID
  8. LOSARTAN. [Concomitant]
     Active Substance: LOSARTAN
     Dosage: 50 MG, QD
  9. CETIRIZINE [Concomitant]
     Active Substance: CETIRIZINE HYDROCHLORIDE
     Dosage: 10 MG, QD

REACTIONS (8)
  - Overdose [Unknown]
  - Delirium [Unknown]
  - Urinary tract infection bacterial [Unknown]
  - Atrial fibrillation [Unknown]
  - Constipation [Unknown]
  - Off label use [Unknown]
  - Transfusion [Unknown]
  - Pruritus [Recovered/Resolved]

NARRATIVE: CASE EVENT DATE: 2015
